FAERS Safety Report 4335004-0 (Version None)
Quarter: 2004Q2

REPORT INFORMATION
  Report Type: 
  Country: None (occurrence: None)
  Receive Date: 20040408
  Receipt Date: 20040402
  Transmission Date: 20050107
  Serious: Yes (Hospitalization)
  Sender: FDA-Public Use
  Company Number: JP-ROCHE-363494

PATIENT
  Age: 65 Year
  Sex: Male

DRUGS (1)
  1. PERDIPINE [Suspect]
     Indication: DRUG USE FOR UNKNOWN INDICATION
     Route: 042
     Dates: start: 20040310, end: 20040326

REACTIONS (1)
  - ILEUS PARALYTIC [None]
